FAERS Safety Report 19900234 (Version 1)
Quarter: 2021Q3

REPORT INFORMATION
  Report Type: Report from Study
  Country: FR (occurrence: FR)
  Receive Date: 20210929
  Receipt Date: 20210929
  Transmission Date: 20211014
  Serious: Yes (Other)
  Sender: FDA-Public Use
  Company Number: FR-MYLANLABS-2021M1066459

PATIENT
  Age: 59 Year
  Sex: Female
  Weight: 50.2 kg

DRUGS (16)
  1. ELIQUIS [Concomitant]
     Active Substance: APIXABAN
     Dosage: UNK UNK, QD
     Dates: start: 20200703
  2. BEVACIZUMAB. [Suspect]
     Active Substance: BEVACIZUMAB
     Indication: NON-SMALL CELL LUNG CANCER
     Dosage: PATIENT RECEIVED 362.5 (UNIT UNSPECIFIED) DOSE OF BEVACIZUMAB
     Route: 042
  3. BIPROFENID [Concomitant]
     Active Substance: KETOPROFEN
     Dosage: UNK UNK, BID
     Dates: start: 20200402, end: 20200404
  4. CARBOPLATIN. [Concomitant]
     Active Substance: CARBOPLATIN
     Indication: NEOPLASM MALIGNANT
     Dosage: MEDICATION DOSE 420 (UNIT NOT SPECIFIED)
  5. PARACETAMOL [Concomitant]
     Active Substance: ACETAMINOPHEN
     Dosage: UNK
     Dates: start: 20190805
  6. PACLITAXEL. [Suspect]
     Active Substance: PACLITAXEL
     Indication: NON-SMALL CELL LUNG CANCER
     Dosage: UNK
     Route: 065
  7. BEVACIZUMAB. [Suspect]
     Active Substance: BEVACIZUMAB
     Indication: NON-SMALL CELL LUNG CANCER METASTATIC
     Dosage: ON UNSPECIFIED DATE, PATIENT RECEIVED 362.5 (UNIT UNSPECIFIED) DOSE OF BEVACIZUMAB
     Route: 042
     Dates: start: 20200409, end: 20200615
  8. DENOSUMAB [Concomitant]
     Active Substance: DENOSUMAB
     Dosage: UNK
     Dates: start: 20190211
  9. FLECAIN [Concomitant]
     Active Substance: FLECAINIDE ACETATE
     Dosage: UNK UNK, QD
  10. CHOLECALCIFEROL [Concomitant]
     Active Substance: CHOLECALCIFEROL
     Dosage: UNK UNK, QD
     Dates: start: 20190211
  11. PEMETREXED. [Concomitant]
     Active Substance: PEMETREXED
     Indication: NEOPLASM MALIGNANT
     Dosage: MEDICATION DOSE 725 (UNIT NOT SEPCIFIED)
  12. ATEZOLIZUMAB. [Suspect]
     Active Substance: ATEZOLIZUMAB
     Indication: NON-SMALL CELL LUNG CANCER
     Dosage: 1200MG, Q3W (24/JUN, 12/JUL, 05/AUG, 26/AUG, 16/SEP, 07/OCT, 28/OCT, 18/NOV, 09/DEC, 30/DEC IN 2019)
     Route: 041
     Dates: start: 20190603
  13. XGEVA [Suspect]
     Active Substance: DENOSUMAB
     Indication: PRODUCT USED FOR UNKNOWN INDICATION
     Dosage: UNK
     Route: 065
  14. CACIT D3 [Concomitant]
     Active Substance: CALCIUM\CHOLECALCIFEROL
     Dosage: UNK
     Dates: start: 20190415
  15. PACLITAXEL. [Suspect]
     Active Substance: PACLITAXEL
     Indication: NON-SMALL CELL LUNG CANCER METASTATIC
     Dosage: UNK
     Route: 065
     Dates: start: 20200409, end: 20200615
  16. TRAMADOL. [Concomitant]
     Active Substance: TRAMADOL
     Dosage: UNK

REACTIONS (5)
  - Mucosal inflammation [Recovered/Resolved]
  - Anaemia [Recovered/Resolved]
  - Osteonecrosis of jaw [Recovered/Resolved]
  - Thrombosis [Recovering/Resolving]
  - Stomatitis [Recovered/Resolved]

NARRATIVE: CASE EVENT DATE: 20200409
